FAERS Safety Report 11821914 (Version 4)
Quarter: 2016Q4

REPORT INFORMATION
  Report Type: Spontaneous
  Country: US (occurrence: US)
  Receive Date: 20151210
  Receipt Date: 20161017
  Transmission Date: 20170206
  Serious: No
  Sender: FDA-Public Use
  Company Number: US-JNJFOC-20150804759

PATIENT
  Age: 72 Year
  Sex: Female
  Weight: 56.69 kg

DRUGS (30)
  1. IMBRUVICA [Suspect]
     Active Substance: IBRUTINIB
     Indication: ACUTE LYMPHOCYTIC LEUKAEMIA
     Route: 048
     Dates: start: 201412, end: 201506
  2. QUESTRAN [Concomitant]
     Active Substance: CHOLESTYRAMINE
     Route: 048
  3. GLICLAZIDE [Concomitant]
     Active Substance: GLICLAZIDE
     Route: 048
  4. ALAVERT ALLERGY [Concomitant]
     Active Substance: LORATADINE
     Route: 048
  5. SUPREP BOWEL PREP [Concomitant]
     Active Substance: MAGNESIUM SULFATE\POTASSIUM SULFATE\SODIUM SULFATE
     Route: 048
  6. IMBRUVICA [Suspect]
     Active Substance: IBRUTINIB
     Indication: CHRONIC LYMPHOCYTIC LEUKAEMIA
     Route: 048
     Dates: start: 20160623
  7. BENTYL [Concomitant]
     Active Substance: DICYCLOMINE HYDROCHLORIDE
     Indication: ABDOMINAL PAIN
     Route: 048
  8. K-DUR [Concomitant]
     Active Substance: POTASSIUM CHLORIDE
     Route: 048
  9. IMBRUVICA [Suspect]
     Active Substance: IBRUTINIB
     Indication: ACUTE LYMPHOCYTIC LEUKAEMIA
     Route: 048
     Dates: start: 201511, end: 20160606
  10. TYLENOL [Concomitant]
     Active Substance: ACETAMINOPHEN
     Indication: PAIN
     Route: 048
  11. BACTRIM [Concomitant]
     Active Substance: SULFAMETHOXAZOLE\TRIMETHOPRIM
     Route: 048
  12. VITAMINE C [Concomitant]
     Active Substance: ASCORBIC ACID
  13. SYMBICORT [Concomitant]
     Active Substance: BUDESONIDE\FORMOTEROL FUMARATE DIHYDRATE
     Route: 065
  14. TUMS [Concomitant]
     Active Substance: CALCIUM CARBONATE
     Route: 048
  15. LACTOBACILLUS ACIDOPHILUS [Concomitant]
     Active Substance: LACTOBACILLUS ACIDOPHILUS
     Route: 048
  16. IMBRUVICA [Suspect]
     Active Substance: IBRUTINIB
     Indication: ACUTE LYMPHOCYTIC LEUKAEMIA
     Route: 048
     Dates: start: 20160623
  17. IMBRUVICA [Suspect]
     Active Substance: IBRUTINIB
     Indication: CHRONIC LYMPHOCYTIC LEUKAEMIA
     Route: 048
     Dates: start: 201511, end: 20160606
  18. AMOXICILLIN. [Concomitant]
     Active Substance: AMOXICILLIN
  19. PREDNISONE. [Concomitant]
     Active Substance: PREDNISONE
     Route: 048
  20. PACERONE [Concomitant]
     Active Substance: AMIODARONE HYDROCHLORIDE
     Route: 048
  21. SUCRALFATE. [Concomitant]
     Active Substance: SUCRALFATE
  22. IPRATROPIUM BROMIDE W/SALBUTAMOL SULFATE [Concomitant]
     Indication: DYSPNOEA
     Dosage: AS NEEDED
     Route: 048
  23. BACTROBAN [Concomitant]
     Active Substance: MUPIROCIN\MUPIROCIN CALCIUM
     Indication: RASH
     Route: 061
  24. IPRATROPIUM BROMIDE W/SALBUTAMOL SULFATE [Concomitant]
     Indication: WHEEZING
     Dosage: AS NEEDED
     Route: 048
  25. FOLIC ACID. [Concomitant]
     Active Substance: FOLIC ACID
  26. IMBRUVICA [Suspect]
     Active Substance: IBRUTINIB
     Indication: CHRONIC LYMPHOCYTIC LEUKAEMIA
     Route: 048
     Dates: start: 201412, end: 201506
  27. OMEPRAZOLE. [Concomitant]
     Active Substance: OMEPRAZOLE
  28. ASPIRIN. [Concomitant]
     Active Substance: ASPIRIN
     Route: 048
  29. DIGESTIVE ENZYME [Concomitant]
     Active Substance: UNSPECIFIED INGREDIENT
     Route: 048
  30. VITAMIN D [Concomitant]
     Active Substance: CHOLECALCIFEROL
     Route: 048

REACTIONS (5)
  - Adverse event [Unknown]
  - Diarrhoea [Recovered/Resolved]
  - Rash [Unknown]
  - Off label use [Not Recovered/Not Resolved]
  - Incorrect dose administered [Not Recovered/Not Resolved]

NARRATIVE: CASE EVENT DATE: 201412
